FAERS Safety Report 8463485-X (Version None)
Quarter: 2012Q2

REPORT INFORMATION
  Report Type: 
  Country: None (occurrence: None)
  Receive Date: 20120323
  Receipt Date: 20110923
  Transmission Date: 20120825
  Serious: Yes (Hospitalization)
  Sender: FDA-Public Use
  Company Number: 163-21880-11093180

PATIENT
  Age: 76 Year
  Sex: Female

DRUGS (3)
  1. REVLIMID [Suspect]
     Indication: MYELODYSPLASTIC SYNDROME
     Dosage: 10 MG, 1 IN 1 D, PO; 5 MG, 1 IN 1 D, PO; 5 MG, EVERY OTHER DAY FOR 21 DAYS  7 DAYS OFF, PO
     Route: 048
     Dates: start: 20110901
  2. REVLIMID [Suspect]
     Indication: MYELODYSPLASTIC SYNDROME
     Dosage: 10 MG, 1 IN 1 D, PO; 5 MG, 1 IN 1 D, PO; 5 MG, EVERY OTHER DAY FOR 21 DAYS  7 DAYS OFF, PO
     Route: 048
     Dates: start: 20110201
  3. REVLIMID [Suspect]
     Indication: MYELODYSPLASTIC SYNDROME
     Dosage: 10 MG, 1 IN 1 D, PO; 5 MG, 1 IN 1 D, PO; 5 MG, EVERY OTHER DAY FOR 21 DAYS  7 DAYS OFF, PO
     Route: 048
     Dates: start: 20110401

REACTIONS (1)
  - ATRIAL FIBRILLATION [None]
